FAERS Safety Report 5762547-5 (Version None)
Quarter: 2008Q2

REPORT INFORMATION
  Report Type: 
  Country: None (occurrence: None)
  Receive Date: 20080609
  Receipt Date: 20080602
  Transmission Date: 20081010
  Serious: Yes (Other)
  Sender: FDA-Public Use
  Company Number: B0519900A

PATIENT
  Age: 61 Year
  Sex: Male

DRUGS (3)
  1. ZELITREX [Suspect]
     Dosage: 500MG THREE TIMES PER DAY
     Route: 048
     Dates: start: 20080212
  2. NEXIUM [Concomitant]
     Dosage: 40MG PER DAY
     Route: 048
     Dates: start: 20071105
  3. METOPROLOLTARTRAAT [Concomitant]
     Dosage: 100MG PER DAY
     Route: 065
     Dates: start: 20070512

REACTIONS (2)
  - RASH [None]
  - VISUAL ACUITY REDUCED [None]
